FAERS Safety Report 5600888-2 (Version None)
Quarter: 2007Q4

REPORT INFORMATION
  Report Type: 
  Country: None (occurrence: None)
  Receive Date: 20071228
  Receipt Date: 20071016
  Transmission Date: 20080405
  Serious: Yes (Other)
  Sender: FDA-Public Use
  Company Number: 20070269

PATIENT
  Age: 79 Year
  Sex: Female

DRUGS (1)
  1. VENOFER [Suspect]
     Indication: ANAEMIA OF MALIGNANT DISEASE
     Dosage: 1 DOSE INTRAVENOUS
     Route: 042
     Dates: start: 20071010

REACTIONS (1)
  - EXTRAVASATION [None]
